FAERS Safety Report 23640332 (Version 1)
Quarter: 2024Q1

REPORT INFORMATION
  Report Type: Spontaneous
  Country: PL (occurrence: PL)
  Receive Date: 20240317
  Receipt Date: 20240317
  Transmission Date: 20240410
  Serious: Yes (Death, Other)
  Sender: FDA-Public Use
  Company Number: PL-BAYER-2024A039590

PATIENT
  Sex: Female

DRUGS (2)
  1. XARELTO [Suspect]
     Active Substance: RIVAROXABAN
     Indication: Product used for unknown indication
     Route: 048
  2. PROTHROMBIN [Suspect]
     Active Substance: PROTHROMBIN
     Indication: Central nervous system haemorrhage

REACTIONS (2)
  - Thrombosis [Fatal]
  - Central nervous system haemorrhage [Unknown]
